FAERS Safety Report 20590209 (Version 1)
Quarter: 2022Q1

REPORT INFORMATION
  Report Type: Spontaneous
  Country: US (occurrence: None)
  Receive Date: 20220312
  Receipt Date: 20220312
  Transmission Date: 20220423
  Serious: Yes (Other)
  Sender: FDA-Public Use
  Company Number: None

PATIENT
  Age: 68 Year
  Sex: Female
  Weight: 78.3 kg

DRUGS (6)
  1. TALTZ [Suspect]
     Active Substance: IXEKIZUMAB
     Indication: Psoriatic arthropathy
     Dosage: OTHER QUANTITY : 1 INJECTION(S);?OTHER FREQUENCY : 4 WEEKS;?
     Route: 058
     Dates: start: 20201101, end: 20220201
  2. VALSARTAN [Concomitant]
     Active Substance: VALSARTAN
  3. ROSUVASTATIN [Concomitant]
     Active Substance: ROSUVASTATIN
  4. VALACYCLOVIR [Concomitant]
     Active Substance: VALACYCLOVIR HYDROCHLORIDE
  5. ANASTROZOLE [Concomitant]
     Active Substance: ANASTROZOLE
  6. VITAMINS [Concomitant]
     Active Substance: VITAMINS

REACTIONS (1)
  - Anal incontinence [None]

NARRATIVE: CASE EVENT DATE: 20210510
